FAERS Safety Report 9793092 (Version 1)
Quarter: 2013Q4

REPORT INFORMATION
  Report Type: Spontaneous
  Country: US (occurrence: None)
  Receive Date: 20131231
  Receipt Date: 20131231
  Transmission Date: 20140711
  Serious: Yes (Hospitalization)
  Sender: FDA-Public Use
  Company Number: None

PATIENT
  Age: 7 Year
  Sex: Male
  Weight: 17.8 kg

DRUGS (3)
  1. METHOTREXATE [Suspect]
  2. PREDNISONE [Suspect]
  3. VINCRISTINE SULFATE [Suspect]

REACTIONS (3)
  - Paraesthesia [None]
  - Urticaria [None]
  - Lip swelling [None]
